FAERS Safety Report 23037599 (Version 3)
Quarter: 2024Q1

REPORT INFORMATION
  Report Type: Spontaneous
  Country: US (occurrence: US)
  Receive Date: 20231006
  Receipt Date: 20240328
  Transmission Date: 20240409
  Serious: No
  Sender: FDA-Public Use
  Company Number: US-SA-SAC20231003000810

PATIENT
  Sex: Female

DRUGS (1)
  1. DUPIXENT [Suspect]
     Active Substance: DUPILUMAB
     Indication: Dermatitis atopic
     Dosage: 300 MG, QOW
     Route: 058

REACTIONS (6)
  - Sleep disorder due to a general medical condition [Unknown]
  - Myalgia [Unknown]
  - Pain in extremity [Unknown]
  - Erythema [Unknown]
  - Pruritus [Unknown]
  - Therapeutic product effect incomplete [Unknown]
